FAERS Safety Report 11603661 (Version 2)
Quarter: 2015Q4

REPORT INFORMATION
  Report Type: Spontaneous
  Country: US (occurrence: US)
  Receive Date: 20151007
  Receipt Date: 20151029
  Transmission Date: 20160304
  Serious: No
  Sender: FDA-Public Use
  Company Number: US-009507513-1510USA001240

PATIENT
  Age: 29 Year
  Sex: Female

DRUGS (1)
  1. NEXPLANON [Suspect]
     Active Substance: ETONOGESTREL
     Indication: CONTRACEPTION
     Dosage: ONE ROD EVERY THREE YEARS
     Route: 059
     Dates: start: 20150930

REACTIONS (4)
  - Implant site discolouration [Recovering/Resolving]
  - Implant site reaction [Recovering/Resolving]
  - Hypersensitivity [Recovering/Resolving]
  - Breast feeding [Unknown]

NARRATIVE: CASE EVENT DATE: 20151001
